FAERS Safety Report 10701044 (Version 1)
Quarter: 2015Q1

REPORT INFORMATION
  Report Type: Spontaneous
  Country: US (occurrence: None)
  Receive Date: 20150108
  Receipt Date: 20150108
  Transmission Date: 20150721
  Serious: No
  Sender: FDA-Public Use
  Company Number: None

PATIENT
  Age: 69 Year
  Sex: Female
  Weight: 64.41 kg

DRUGS (13)
  1. CLOPIDOGREL [Suspect]
     Active Substance: CLOPIDOGREL BISULFATE
     Indication: CEREBROVASCULAR ACCIDENT
     Dosage: 75MG TAB, 1 TAB, ONCE DAILY, BY MOUTH
     Route: 048
     Dates: start: 20141111, end: 20141211
  2. TOPAMAX [Concomitant]
     Active Substance: TOPIRAMATE
  3. VITAMIN D [Concomitant]
     Active Substance: CHOLECALCIFEROL
  4. LINZESS [Concomitant]
     Active Substance: LINACLOTIDE
  5. FOLIC ACID. [Concomitant]
     Active Substance: FOLIC ACID
  6. HYDRORODONE [Concomitant]
  7. PROMATNAZINE [Concomitant]
  8. MINOXIDIL. [Concomitant]
     Active Substance: MINOXIDIL
  9. CARVEDIOLOL [Concomitant]
  10. CYCLOBENZAPINE [Concomitant]
  11. DUEXIS [Concomitant]
     Active Substance: FAMOTIDINE\IBUPROFEN
  12. METHYLPREDNISOLONE. [Concomitant]
     Active Substance: METHYLPREDNISOLONE
  13. SIMVASTATIN. [Concomitant]
     Active Substance: SIMVASTATIN

REACTIONS (3)
  - Product substitution issue [None]
  - Pruritus [None]
  - Rash erythematous [None]

NARRATIVE: CASE EVENT DATE: 20141114
